FAERS Safety Report 12739304 (Version 1)
Quarter: 2016Q3

REPORT INFORMATION
  Report Type: Spontaneous
  Country: None (occurrence: FI)
  Receive Date: 20160913
  Receipt Date: 20160913
  Transmission Date: 20161109
  Serious: Yes (Other)
  Sender: FDA-Public Use
  Company Number: FI-POPULATION COUNCIL, INC.-1057284

PATIENT
  Sex: Female

DRUGS (1)
  1. JADELLE [Suspect]
     Active Substance: LEVONORGESTREL
     Indication: CONTRACEPTION
     Route: 058
     Dates: start: 20080116

REACTIONS (5)
  - Device dislocation [None]
  - Hypoaesthesia [None]
  - Complication of device removal [None]
  - Device use issue [None]
  - Procedural pain [None]

NARRATIVE: CASE EVENT DATE: 20160503
